FAERS Safety Report 8856196 (Version 1)
Quarter: 2012Q4

REPORT INFORMATION
  Report Type: Spontaneous
  Country: US (occurrence: None)
  Receive Date: 20121023
  Receipt Date: 20121023
  Transmission Date: 20130627
  Serious: No
  Sender: FDA-Public Use
  Company Number: None

PATIENT
  Sex: Female
  Weight: 64.41 kg

DRUGS (1)
  1. DIPRIVAN [Suspect]
     Indication: SEDATION
     Dosage: 150 mg IV
     Route: 042
     Dates: start: 20121010

REACTIONS (1)
  - Rash [None]
